FAERS Safety Report 14597099 (Version 2)
Quarter: 2018Q1

REPORT INFORMATION
  Report Type: Spontaneous
  Country: KG (occurrence: KG)
  Receive Date: 20180305
  Receipt Date: 20180324
  Transmission Date: 20180509
  Serious: Yes (Death)
  Sender: FDA-Public Use
  Company Number: KG-ROCHE-2084406

PATIENT
  Age: 67 Year
  Sex: Male

DRUGS (2)
  1. IRINOTECAN [Concomitant]
     Active Substance: IRINOTECAN
     Indication: GLIOBLASTOMA
     Route: 042
     Dates: start: 20160309
  2. AVASTIN [Suspect]
     Active Substance: BEVACIZUMAB
     Indication: GLIOBLASTOMA
     Route: 065
     Dates: start: 20160309, end: 20180107

REACTIONS (1)
  - Death [Fatal]

NARRATIVE: CASE EVENT DATE: 20180225
